FAERS Safety Report 19719933 (Version 1)
Quarter: 2021Q3

REPORT INFORMATION
  Report Type: Spontaneous
  Country: GB (occurrence: GB)
  Receive Date: 20210818
  Receipt Date: 20210818
  Transmission Date: 20211014
  Serious: Yes (Death, Other)
  Sender: FDA-Public Use
  Company Number: GB-009507513-2108GBR004055

PATIENT
  Age: 50 Year
  Sex: Male
  Weight: 89 kg

DRUGS (19)
  1. PRASUGREL. [Concomitant]
     Active Substance: PRASUGREL
     Indication: ACUTE CORONARY SYNDROME
     Dosage: 5 MILLIGRAM, QD
  2. CITALOPRAM [Concomitant]
     Active Substance: CITALOPRAM HYDROBROMIDE
     Indication: DEPRESSION
     Dosage: 10 MILLIGRAM, QD
  3. EVACAL D3 [Concomitant]
     Indication: OSTEOPOROSIS PROPHYLAXIS
     Dosage: 1 DOSAGE FORM, BID
  4. RAMIPRIL. [Concomitant]
     Active Substance: RAMIPRIL
     Indication: ACUTE CORONARY SYNDROME
     Dosage: 2.5 MILLIGRAM, QD
  5. GLYCOPYRONIUM [Concomitant]
     Active Substance: GLYCOPYRRONIUM
     Indication: BRONCHIECTASIS
     Dosage: 10 MICROGRAM, QD
  6. DORAVIRINE [Suspect]
     Active Substance: DORAVIRINE
     Indication: HIV INFECTION
     Dosage: 1 TABLET (100 MG) DAILY
     Route: 048
     Dates: start: 20200206
  7. CANAGLIFLOZIN [Concomitant]
     Active Substance: CANAGLIFLOZIN
     Indication: TYPE 2 DIABETES MELLITUS
     Dosage: 100 MILLIGRAM, QD
  8. MONTELUKAST [Concomitant]
     Active Substance: MONTELUKAST SODIUM
     Indication: BRONCHIECTASIS
     Dosage: 10 MILLIGRAM, QD
  9. BIKTARVY [Suspect]
     Active Substance: BICTEGRAVIR SODIUM\EMTRICITABINE\TENOFOVIR ALAFENAMIDE FUMARATE
     Indication: HIV INFECTION
     Dosage: 1 TABLET DAILY
     Route: 048
     Dates: start: 20200206
  10. ISOSORBIDE MONONITRATE. [Concomitant]
     Active Substance: ISOSORBIDE MONONITRATE
     Indication: ACUTE CORONARY SYNDROME
     Dosage: 60 MILLIGRAM, QD
  11. LOPERAMIDE [Concomitant]
     Active Substance: LOPERAMIDE
     Indication: DIARRHOEA
     Dosage: 2 MILLIGRAM, PRN (USUALLY 4MG QD)
  12. SYMBICORT [Concomitant]
     Active Substance: BUDESONIDE\FORMOTEROL FUMARATE DIHYDRATE
     Indication: BRONCHIECTASIS
     Dosage: 2 PUFFS, BID
  13. LEVOTHYROXINE. [Concomitant]
     Active Substance: LEVOTHYROXINE
     Indication: HYPOTHYROIDISM
     Dosage: 150 MICROGRAM, QD
  14. NIFEDIPINE. [Concomitant]
     Active Substance: NIFEDIPINE
     Indication: ACUTE CORONARY SYNDROME
     Dosage: 10 MILLIGRAM, BID
  15. LEVOFLOXACIN. [Concomitant]
     Active Substance: LEVOFLOXACIN
     Indication: BRONCHIECTASIS
     Dosage: 500 MILLIGRAM, QD
  16. FOLIC ACID. [Concomitant]
     Active Substance: FOLIC ACID
     Indication: FOLATE DEFICIENCY
     Dosage: 5 MILLIGRAM, QD
  17. ATORVASTATIN [Concomitant]
     Active Substance: ATORVASTATIN
     Indication: ACUTE CORONARY SYNDROME
     Dosage: 200 MILLIGRAM, QD
  18. METFORMIN [Concomitant]
     Active Substance: METFORMIN HYDROCHLORIDE
     Indication: TYPE 2 DIABETES MELLITUS
     Dosage: 1 GRAM, BID
  19. OMEPRAZOLE. [Concomitant]
     Active Substance: OMEPRAZOLE
     Indication: GASTROOESOPHAGEAL REFLUX DISEASE
     Dosage: 20 MILLIGRAM, QD

REACTIONS (9)
  - HIV infection [Fatal]
  - Chronic obstructive pulmonary disease [Fatal]
  - Arteriosclerosis coronary artery [Fatal]
  - Hypertension [Fatal]
  - Blood cholesterol abnormal [Unknown]
  - Glycosylated haemoglobin increased [Unknown]
  - Diabetes mellitus [Fatal]
  - Cardiac arrest [Fatal]
  - Myocardial ischaemia [Fatal]

NARRATIVE: CASE EVENT DATE: 20200206
